FAERS Safety Report 6891693-8 (Version None)
Quarter: 2010Q3

REPORT INFORMATION
  Report Type: 
  Country: None (occurrence: None)
  Receive Date: 20100731
  Receipt Date: 20070917
  Transmission Date: 20110219
  Serious: No
  Sender: FDA-Public Use
  Company Number: US-PFIZER INC-2007078336

PATIENT
  Sex: Female
  Weight: 56.8 kg

DRUGS (4)
  1. NORVASC [Suspect]
     Indication: HYPERTENSION
  2. PREMARIN [Concomitant]
     Indication: HORMONE REPLACEMENT THERAPY
  3. PROVERA [Concomitant]
     Indication: HORMONE REPLACEMENT THERAPY
  4. SYNTHROID [Concomitant]

REACTIONS (1)
  - RASH MACULAR [None]
